FAERS Safety Report 6603397-7 (Version None)
Quarter: 2010Q1

REPORT INFORMATION
  Report Type: 
  Country: None (occurrence: None)
  Receive Date: 20100226
  Receipt Date: 20090414
  Transmission Date: 20100710
  Serious: No
  Sender: FDA-Public Use
  Company Number: A0778718A

PATIENT
  Age: 72 Year
  Sex: Female

DRUGS (6)
  1. VALTREX [Suspect]
     Dosage: 2G TWICE PER DAY
     Route: 048
     Dates: start: 20090410, end: 20090410
  2. PREDNISONE [Concomitant]
  3. ALLEGRA [Concomitant]
  4. ADVAIR DISKUS 100/50 [Concomitant]
  5. BENICAR [Concomitant]
  6. BONIVA [Concomitant]

REACTIONS (1)
  - DRUG INEFFECTIVE [None]
